FAERS Safety Report 11223887 (Version 1)
Quarter: 2015Q2

REPORT INFORMATION
  Report Type: Spontaneous
  Country: US (occurrence: US)
  Receive Date: 20150629
  Receipt Date: 20150629
  Transmission Date: 20150821
  Serious: No
  Sender: FDA-Public Use
  Company Number: US-ASTRAZENECA-2014SE74199

PATIENT
  Age: 53 Year
  Sex: Female
  Weight: 91.2 kg

DRUGS (20)
  1. BUSPAR [Concomitant]
     Active Substance: BUSPIRONE HYDROCHLORIDE
  2. MOBIC [Concomitant]
     Active Substance: MELOXICAM
  3. VITAMIN D [Concomitant]
     Active Substance: CHOLECALCIFEROL
  4. PREVACID [Concomitant]
     Active Substance: LANSOPRAZOLE
  5. CRESTOR [Suspect]
     Active Substance: ROSUVASTATIN CALCIUM
     Indication: BLOOD CHOLESTEROL INCREASED
     Route: 048
  6. MAXALT [Concomitant]
     Active Substance: RIZATRIPTAN BENZOATE
  7. BYETTA [Suspect]
     Active Substance: EXENATIDE
     Indication: TYPE 2 DIABETES MELLITUS
     Route: 058
  8. BYDUREON [Suspect]
     Active Substance: EXENATIDE
     Indication: TYPE 2 DIABETES MELLITUS
     Route: 065
  9. KLONOPIN [Concomitant]
     Active Substance: CLONAZEPAM
  10. TRAMDOL [Concomitant]
  11. ZOLOFT [Concomitant]
     Active Substance: SERTRALINE HYDROCHLORIDE
  12. BYETTA [Suspect]
     Active Substance: EXENATIDE
     Indication: TYPE 2 DIABETES MELLITUS
     Route: 058
  13. IMITREX [Concomitant]
     Active Substance: SUMATRIPTAN\SUMATRIPTAN SUCCINATE
  14. CLONIDINE. [Concomitant]
     Active Substance: CLONIDINE
  15. VASPOR [Concomitant]
  16. TOPAMAX [Concomitant]
     Active Substance: TOPIRAMATE
  17. NEXIUM [Concomitant]
     Active Substance: ESOMEPRAZOLE MAGNESIUM
  18. ULTRAM [Concomitant]
     Active Substance: TRAMADOL HYDROCHLORIDE
  19. ALTRAM [Concomitant]
  20. TRENTOL [Concomitant]

REACTIONS (5)
  - Tremor [Unknown]
  - Drug dose omission [Recovered/Resolved]
  - Body height decreased [Unknown]
  - Injection site mass [Recovered/Resolved]
  - Injection site reaction [Not Recovered/Not Resolved]
